FAERS Safety Report 25315311 (Version 2)
Quarter: 2025Q2

REPORT INFORMATION
  Report Type: Report from Study
  Country: US (occurrence: US)
  Receive Date: 20250514
  Receipt Date: 20250602
  Transmission Date: 20250717
  Serious: Yes (Other)
  Sender: MALLINCKRODT
  Company Number: US-MALLINCKRODT-MNK202502186

PATIENT
  Age: 39 Year
  Sex: Male

DRUGS (1)
  1. CORTICOTROPIN [Suspect]
     Active Substance: CORTICOTROPIN
     Indication: Proteinuria
     Route: 058
     Dates: start: 20250408, end: 202504

REACTIONS (10)
  - Haemorrhage [Unknown]
  - Illness [Unknown]
  - Contusion [Unknown]
  - Dry eye [Unknown]
  - Vision blurred [Unknown]
  - Dizziness [Unknown]
  - Injection site bruising [Unknown]
  - Localised infection [Unknown]
  - Hypertension [Unknown]
  - Blood glucose increased [Unknown]

NARRATIVE: CASE EVENT DATE: 20250101
